FAERS Safety Report 20260705 (Version 1)
Quarter: 2021Q4

REPORT INFORMATION
  Report Type: Report from Study
  Country: CO (occurrence: CO)
  Receive Date: 20211230
  Receipt Date: 20211230
  Transmission Date: 20220303
  Serious: Yes (Death, Hospitalization, Other)
  Sender: FDA-Public Use
  Company Number: CO-ABBVIE-21K-036-4214795-00

PATIENT
  Age: 86 Year
  Sex: Female

DRUGS (2)
  1. HUMIRA [Suspect]
     Active Substance: ADALIMUMAB
     Indication: Rheumatoid arthritis
     Route: 058
     Dates: end: 20211201
  2. HUMIRA [Suspect]
     Active Substance: ADALIMUMAB
     Indication: Rheumatoid arthritis
     Route: 058
     Dates: start: 20090220

REACTIONS (7)
  - Death [Fatal]
  - White blood cell count decreased [Not Recovered/Not Resolved]
  - Platelet count decreased [Not Recovered/Not Resolved]
  - Pneumonia [Not Recovered/Not Resolved]
  - Pleural effusion [Not Recovered/Not Resolved]
  - Malaise [Not Recovered/Not Resolved]
  - Immune system disorder [Not Recovered/Not Resolved]

NARRATIVE: CASE EVENT DATE: 20211203
